FAERS Safety Report 8201339 (Version 5)
Quarter: 2013Q1

REPORT INFORMATION
  Report Type: Report from Study
  Country: BR (occurrence: BR)
  Receive Date: 20111026
  Receipt Date: 20130325
  Transmission Date: 20140127
  Serious: Yes (Hospitalization, Other)
  Sender: FDA-Public Use
  Company Number: BR-ROCHE-759501

PATIENT
  Sex: Female
  Weight: 54 kg

DRUGS (10)
  1. MABTHERA [Suspect]
     Indication: RHEUMATOID ARTHRITIS
     Route: 042
     Dates: start: 20100401, end: 20100415
  2. MABTHERA [Suspect]
     Route: 042
  3. MABTHERA [Suspect]
     Route: 042
  4. ENALAPRIL [Concomitant]
     Route: 065
  5. CRESTOR [Concomitant]
     Route: 065
  6. WARFARIN SODIUM [Concomitant]
     Route: 065
  7. ACETYLSALICYLIC ACID [Concomitant]
     Route: 065
  8. PARACETAMOL/TRAMADOL HYDROCHLORIDE [Concomitant]
     Indication: ANALGESIC THERAPY
  9. PREDNISONE [Concomitant]
  10. AZULFIN [Concomitant]

REACTIONS (15)
  - Cerebrovascular accident [Recovered/Resolved]
  - Ill-defined disorder [Recovering/Resolving]
  - Cardiac disorder [Recovering/Resolving]
  - Hypertension [Not Recovered/Not Resolved]
  - Diabetes mellitus [Not Recovered/Not Resolved]
  - Swelling [Not Recovered/Not Resolved]
  - Pain [Not Recovered/Not Resolved]
  - Rheumatoid arthritis [Not Recovered/Not Resolved]
  - Blood cholesterol increased [Recovered/Resolved]
  - Drug effect delayed [Unknown]
  - Shoulder deformity [Not Recovered/Not Resolved]
  - Musculoskeletal pain [Unknown]
  - Pain in extremity [Unknown]
  - Arthropathy [Unknown]
  - Drug ineffective [Unknown]
